FAERS Safety Report 7077389-0 (Version None)
Quarter: 2010Q4

REPORT INFORMATION
  Report Type: 
  Country: None (occurrence: None)
  Receive Date: 20101101
  Receipt Date: 20101019
  Transmission Date: 20110411
  Serious: Yes (Other)
  Sender: FDA-Public Use
  Company Number: US-MERCK-1009USA05228

PATIENT
  Age: 52 Year
  Sex: Male

DRUGS (18)
  1. ISENTRESS [Suspect]
     Route: 048
  2. ZERIT [Suspect]
     Route: 065
  3. VIDEX [Suspect]
     Route: 065
  4. SUSTIVA [Suspect]
     Route: 048
  5. ZIDOVUDINE [Suspect]
     Route: 065
  6. LAMIVUDINE [Suspect]
     Route: 065
  7. NORVIR [Suspect]
     Route: 065
  8. SAQUINAVIR [Suspect]
     Route: 048
  9. ABACAVIR [Suspect]
     Route: 065
  10. LOPINAVIR [Suspect]
     Route: 065
  11. NEVIRAPINE [Suspect]
     Route: 065
  12. ENFUVIRTIDE [Suspect]
     Route: 065
  13. TENOFOVIR [Suspect]
     Route: 065
  14. DARUNAVIR [Suspect]
     Route: 065
  15. DELAVIRDINE MESYLATE [Suspect]
     Route: 065
  16. ETRAVIRINE [Suspect]
     Route: 065
  17. VIRACEPT [Suspect]
     Route: 065
  18. INDINAVIR [Suspect]
     Route: 048

REACTIONS (5)
  - DIPLOPIA [None]
  - EYELID PTOSIS [None]
  - LIPODYSTROPHY ACQUIRED [None]
  - MITOCHONDRIAL TOXICITY [None]
  - PROGRESSIVE EXTERNAL OPHTHALMOPLEGIA [None]
